FAERS Safety Report 11720136 (Version 3)
Quarter: 2016Q3

REPORT INFORMATION
  Report Type: Spontaneous
  Country: US (occurrence: US)
  Receive Date: 20151110
  Receipt Date: 20160824
  Transmission Date: 20161109
  Serious: Yes (Other)
  Sender: FDA-Public Use
  Company Number: US-BAYER-2015-458931

PATIENT
  Age: 53 Year
  Sex: Female
  Weight: 59.86 kg

DRUGS (3)
  1. CIPROFLOXACIN. [Suspect]
     Active Substance: CIPROFLOXACIN
     Dosage: UNK
     Dates: start: 201305
  2. CIPROFLOXACIN. [Suspect]
     Active Substance: CIPROFLOXACIN
     Dosage: UNK
     Dates: start: 201304
  3. CIPRO [Suspect]
     Active Substance: CIPROFLOXACIN HYDROCHLORIDE

REACTIONS (14)
  - Pain [None]
  - Disturbance in attention [None]
  - Injury [None]
  - Depression [None]
  - Neuropathy peripheral [None]
  - Emotional distress [None]
  - Dysstasia [None]
  - Hypoaesthesia [None]
  - Dizziness [None]
  - Loss of employment [None]
  - Tremor [None]
  - Asthenia [None]
  - Burning sensation [None]
  - Gait disturbance [None]

NARRATIVE: CASE EVENT DATE: 201306
